FAERS Safety Report 12119638 (Version 3)
Quarter: 2016Q2

REPORT INFORMATION
  Report Type: Report from Study
  Country: US (occurrence: US)
  Receive Date: 20160226
  Receipt Date: 20160427
  Transmission Date: 20160815
  Serious: Yes (Hospitalization)
  Sender: FDA-Public Use
  Company Number: US-JNJFOC-20160224677

PATIENT
  Age: 66 Year
  Sex: Male
  Weight: 109 kg

DRUGS (4)
  1. ALLOPURINOL. [Concomitant]
     Active Substance: ALLOPURINOL
  2. OSTEO BI-FLEX [Concomitant]
     Active Substance: CHONDROITIN SULFATE A\GLUCOSAMINE
  3. IMBRUVICA [Suspect]
     Active Substance: IBRUTINIB
     Indication: CHRONIC LYMPHOCYTIC LEUKAEMIA
     Route: 048
     Dates: start: 20150511, end: 20160128
  4. DIAZEPAM. [Concomitant]
     Active Substance: DIAZEPAM

REACTIONS (4)
  - Bladder papilloma [Recovered/Resolved]
  - Hypogammaglobulinaemia [Unknown]
  - Abdominal distension [Recovered/Resolved]
  - Urinary bladder haemorrhage [Recovered/Resolved]

NARRATIVE: CASE EVENT DATE: 201601
